FAERS Safety Report 4446134-7 (Version None)
Quarter: 2004Q3

REPORT INFORMATION
  Report Type: 
  Country: None (occurrence: None)
  Receive Date: 20040907
  Receipt Date: 20040820
  Transmission Date: 20050211
  Serious: Yes (Life-Threatening, Hospitalization)
  Sender: FDA-Public Use
  Company Number: JP-ROCHE-378089

PATIENT
  Age: 84 Year
  Sex: Male

DRUGS (2)
  1. PERDIPINE [Suspect]
     Indication: HYPERTENSION
     Dosage: DURATION REPORTED AS 12 WEEKS AND 5 DAYS
     Route: 048
     Dates: start: 20030120, end: 20030418
  2. PERDIPINE [Suspect]
     Dosage: DURATION REPORTED AS 1 YEAR, 15WEEKS AND 4 DAYS
     Route: 048
     Dates: start: 20030419, end: 20040804

REACTIONS (8)
  - CHILLS [None]
  - LEUKOCYTOCLASTIC VASCULITIS [None]
  - POLLAKIURIA [None]
  - PULMONARY ALVEOLAR HAEMORRHAGE [None]
  - PURPURA [None]
  - PYREXIA [None]
  - RASH [None]
  - VASCULITIS [None]
